FAERS Safety Report 9751725 (Version 2)
Quarter: 2014Q2

REPORT INFORMATION
  Report Type: Report from Study
  Country: DE (occurrence: DE)
  Receive Date: 20131213
  Receipt Date: 20140411
  Transmission Date: 20141212
  Serious: Yes (Hospitalization)
  Sender: FDA-Public Use
  Company Number: DE-AMGEN-DEUCT2013086791

PATIENT
  Age: 21 Year
  Sex: Female

DRUGS (2)
  1. ETANERCEPT [Suspect]
     Indication: PRODUCT USED FOR UNKNOWN INDICATION
     Dosage: 50 MG, EVERY 14 DAYS
     Route: 065
     Dates: end: 201309
  2. LANTAREL [Concomitant]
     Dosage: 7.5 MG, WEEKLY

REACTIONS (1)
  - Clinically isolated syndrome [Recovered/Resolved]
